FAERS Safety Report 5803935-8 (Version None)
Quarter: 2008Q3

REPORT INFORMATION
  Report Type: 
  Country: None (occurrence: None)
  Receive Date: 20080708
  Receipt Date: 20080626
  Transmission Date: 20090109
  Serious: Yes (Other)
  Sender: FDA-Public Use
  Company Number: US-PFIZER INC-2008054164

PATIENT
  Sex: Female
  Weight: 90.7 kg

DRUGS (4)
  1. SERTRALINE [Suspect]
     Indication: DEPRESSION
     Route: 048
     Dates: start: 20080619, end: 20080625
  2. ZETIA [Concomitant]
  3. MICARDIS [Concomitant]
     Indication: HYPERTENSION
  4. AMOXICILLIN [Concomitant]

REACTIONS (6)
  - HYPERHIDROSIS [None]
  - NERVOUSNESS [None]
  - OROPHARYNGEAL SPASM [None]
  - PANIC REACTION [None]
  - POOR QUALITY SLEEP [None]
  - THROAT TIGHTNESS [None]
